FAERS Safety Report 7537658-4 (Version None)
Quarter: 2011Q2

REPORT INFORMATION
  Report Type: 
  Country: None (occurrence: None)
  Receive Date: 20110609
  Receipt Date: 20070821
  Transmission Date: 20111010
  Serious: Yes (Death)
  Sender: FDA-Public Use
  Company Number: PHEH2007US10791

PATIENT
  Sex: Male

DRUGS (1)
  1. EXJADE [Suspect]
     Indication: MYELODYSPLASTIC SYNDROME
     Dosage: 1125 MG, QD
     Route: 048
     Dates: start: 20061222

REACTIONS (3)
  - TERMINAL STATE [None]
  - BREAST CANCER METASTATIC [None]
  - LYMPHOCYTIC LEUKAEMIA [None]
